FAERS Safety Report 6343211-0 (Version None)
Quarter: 2009Q3

REPORT INFORMATION
  Report Type: 
  Country: None (occurrence: None)
  Receive Date: 20090908
  Receipt Date: 20090908
  Transmission Date: 20100115
  Serious: Yes (Other)
  Sender: FDA-Public Use
  Company Number: US-PFIZER INC-2009239212

PATIENT
  Sex: Female
  Weight: 70.295 kg

DRUGS (1)
  1. AZITHROMYCIN [Suspect]
     Indication: BRONCHITIS
     Dosage: UNK
     Route: 048
     Dates: start: 20090609, end: 20090613

REACTIONS (5)
  - ANXIETY [None]
  - DAYDREAMING [None]
  - DECREASED APPETITE [None]
  - DEPRESSION [None]
  - WEIGHT DECREASED [None]
